FAERS Safety Report 5592297-X (Version None)
Quarter: 2007Q4

REPORT INFORMATION
  Report Type: 
  Country: None (occurrence: None)
  Receive Date: 20071217
  Receipt Date: 20070927
  Transmission Date: 20080405
  Serious: Yes (Hospitalization)
  Sender: FDA-Public Use
  Company Number: BDI-010251

PATIENT
  Age: 64 Year
  Sex: Male

DRUGS (5)
  1. MULTIHANCE [Suspect]
     Indication: NUCLEAR MAGNETIC RESONANCE IMAGING ABDOMINAL
     Dosage: 16 ML ONCE IV
     Route: 042
     Dates: start: 20070808, end: 20070808
  2. MULTIHANCE [Suspect]
     Indication: RENAL MASS
     Dosage: 16 ML ONCE IV
     Route: 042
     Dates: start: 20070808, end: 20070808
  3. COLESTYRAMINE [Concomitant]
  4. HERBAL [Concomitant]
  5. ASPIRIN [Concomitant]

REACTIONS (2)
  - ANAPHYLACTIC SHOCK [None]
  - SCROTAL PAIN [None]
